FAERS Safety Report 20176396 (Version 1)
Quarter: 2021Q4

REPORT INFORMATION
  Report Type: Spontaneous
  Country: AU (occurrence: AU)
  Receive Date: 20211213
  Receipt Date: 20211213
  Transmission Date: 20220303
  Serious: Yes (Other)
  Sender: FDA-Public Use
  Company Number: US-BAYER-2020-283497

PATIENT
  Age: 68 Year
  Sex: Female

DRUGS (1)
  1. ADEMPAS [Suspect]
     Active Substance: RIOCIGUAT
     Indication: Pulmonary arterial hypertension
     Dosage: 0.5 MG
     Route: 048

REACTIONS (6)
  - Thrombosis [None]
  - Complication associated with device [None]
  - Pulmonary embolism [None]
  - Hypertension [None]
  - Illness [None]
  - Mobility decreased [None]
